FAERS Safety Report 9000937 (Version 1)
Quarter: 2012Q4

REPORT INFORMATION
  Report Type: Spontaneous
  Country: GB (occurrence: None)
  Receive Date: 20121226
  Receipt Date: 20121226
  Transmission Date: 20130627
  Serious: Yes (Hospitalization)
  Sender: FDA-Public Use
  Company Number: AUR-APL-2012-05405

PATIENT
  Age: 66 Year
  Sex: Male

DRUGS (6)
  1. CIPROFLOXACIN (CIPROFLOXACIN) [Suspect]
     Indication: CHEST INFECTION
     Dosage: 1000 mg (500 mg, 2 in 1 D), Oral
     Route: 048
     Dates: start: 20121130, end: 20121202
  2. IBUPROFEN (IBUROFEN) [Concomitant]
  3. INFLUENZAVIRUS (INFLUENZA VACCINE) [Concomitant]
  4. OMEPRAZOLE (OMEPRAZOLE) [Concomitant]
  5. PNEUMOCOCCAL POLYSACCHARIDE VACCINE (PNEUMOCOCCAL POLYSACCHARIDE VACCINE) [Concomitant]
  6. SIMVASTATIN (SIMVASTATIN) [Concomitant]

REACTIONS (4)
  - Atrial fibrillation [None]
  - Palpitations [None]
  - Chest discomfort [None]
  - Dyspnoea [None]
